FAERS Safety Report 8230469-6 (Version None)
Quarter: 2012Q1

REPORT INFORMATION
  Report Type: 
  Country: None (occurrence: None)
  Receive Date: 20120323
  Receipt Date: 20120313
  Transmission Date: 20120608
  Serious: No
  Sender: FDA-Public Use
  Company Number: US-BAYER-201026433NA

PATIENT
  Age: 25 Year
  Sex: Female
  Weight: 78.458 kg

DRUGS (1)
  1. MIRENA [Suspect]
     Indication: PRODUCT USED FOR UNKNOWN INDICATION
     Dosage: 20 MCG/24HR, CONT
     Route: 015
     Dates: start: 20090811, end: 20100515

REACTIONS (1)
  - PREGNANCY WITH CONTRACEPTIVE DEVICE [None]
